FAERS Safety Report 21221164 (Version 2)
Quarter: 2022Q3

REPORT INFORMATION
  Report Type: Spontaneous
  Country: US (occurrence: None)
  Receive Date: 20220817
  Receipt Date: 20220822
  Transmission Date: 20221027
  Serious: Yes (Other)
  Sender: FDA-Public Use
  Company Number: 2022A286668

PATIENT
  Age: 58 Year
  Sex: Male
  Weight: 97.5 kg

DRUGS (5)
  1. METOPROLOL [Suspect]
     Active Substance: METOPROLOL
     Route: 048
  2. ASTRAZENECA COVID-19 VACCINE [Suspect]
     Active Substance: AZD-1222
     Route: 065
  3. OMEPRAZOLE [Suspect]
     Active Substance: OMEPRAZOLE
     Route: 048
  4. CRESTOR [Suspect]
     Active Substance: ROSUVASTATIN CALCIUM
     Indication: Blood cholesterol
     Route: 048
  5. FAMOTIDINE [Concomitant]
     Active Substance: FAMOTIDINE

REACTIONS (10)
  - Bursitis infective [Unknown]
  - Joint swelling [Unknown]
  - Fatigue [Unknown]
  - Paraesthesia [Unknown]
  - Muscular weakness [Unknown]
  - Nerve conduction studies abnormal [Unknown]
  - Hypoaesthesia [Unknown]
  - Chest discomfort [Unknown]
  - Feeling abnormal [Unknown]
  - Heart rate decreased [Unknown]

NARRATIVE: CASE EVENT DATE: 20211101
